FAERS Safety Report 8145448-7 (Version None)
Quarter: 2012Q1

REPORT INFORMATION
  Report Type: 
  Country: None (occurrence: None)
  Receive Date: 20120217
  Receipt Date: 20120209
  Transmission Date: 20120608
  Serious: Yes (Other)
  Sender: FDA-Public Use
  Company Number: US-ELI_LILLY_AND_COMPANY-US201202003904

PATIENT
  Sex: Female
  Weight: 60.317 kg

DRUGS (6)
  1. HYDROCHLOROTHIAZIDE [Concomitant]
  2. EFFIENT [Suspect]
     Indication: CORONARY ARTERIAL STENT INSERTION
     Dosage: UNK
     Dates: start: 20110701
  3. EFFIENT [Suspect]
     Dosage: 10 MG, EVERY OTHER DAY
  4. PRAVASTATIN [Concomitant]
  5. ASPIRIN [Concomitant]
     Dosage: 325 MG, UNK
  6. TOPROL-XL [Concomitant]

REACTIONS (12)
  - FATIGUE [None]
  - SWOLLEN TONGUE [None]
  - PHARYNGEAL HYPOAESTHESIA [None]
  - ABDOMINAL PAIN UPPER [None]
  - DIZZINESS [None]
  - CHEST DISCOMFORT [None]
  - PYREXIA [None]
  - CHILLS [None]
  - DYSPNOEA [None]
  - SPEECH DISORDER [None]
  - INTENTIONAL DRUG MISUSE [None]
  - HEART RATE IRREGULAR [None]
